FAERS Safety Report 5324332-8 (Version None)
Quarter: 2007Q2

REPORT INFORMATION
  Report Type: 
  Country: None (occurrence: None)
  Receive Date: 20070509
  Receipt Date: 20070220
  Transmission Date: 20071010
  Serious: Yes (Death, Life-Threatening, Congenital Anomaly)
  Sender: FDA-Public Use
  Company Number: 260347

PATIENT
  Sex: Female
  Weight: 2 kg

DRUGS (5)
  1. ACTRAPID(INSULIN HUMAN) SOLUTION FOR INJECTION [Suspect]
     Indication: DIABETES MELLITUS INSULIN-DEPENDENT
     Dosage: TRANSPLACENTAL
     Route: 064
     Dates: start: 20060115
  2. INSULATARD FLEXPEN(INSULIN HUMAN) SUSPENSION FOR INJECTION, 100IU/ML [Suspect]
     Indication: DIABETES MELLITUS INSULIN-DEPENDENT
     Dosage: TRANSPLACENTAL
     Route: 064
     Dates: start: 20051201
  3. DEPAKENE [Suspect]
     Indication: EPILEPSY
     Dosage: 750 MG, TRANSPLACENTAL
     Route: 064
     Dates: end: 20050101
  4. LANTUS [Suspect]
     Indication: DRUG USE FOR UNKNOWN INDICATION
     Dosage: TRANSPLACENTAL
     Route: 064
     Dates: end: 20051201
  5. HUMALOG /00030501/ (INSULIN) [Concomitant]

REACTIONS (6)
  - ABORTION INDUCED [None]
  - ATRIAL SEPTAL DEFECT [None]
  - CONGENITAL DIAPHRAGMATIC HERNIA [None]
  - DRUG EXPOSURE BEFORE PREGNANCY [None]
  - DRUG EXPOSURE DURING PREGNANCY [None]
  - RESPIRATORY TRACT MALFORMATION [None]
